FAERS Safety Report 9528117 (Version 1)
Quarter: 2013Q1

REPORT INFORMATION
  Report Type: Spontaneous
  Country: US (occurrence: None)
  Receive Date: 20130314
  Receipt Date: 20130314
  Transmission Date: 20140127
  Serious: Yes (Other)
  Sender: FDA-Public Use
  Company Number: 1212USA001424

PATIENT
  Sex: Female

DRUGS (3)
  1. VICTRELIS (BOCEPREVIR) CAPSULE, 200MG [Suspect]
     Indication: HEPATITIS C
     Route: 048
     Dates: start: 20121009
  2. PEGASYS (PEGINTERFERON ALFA-2A) [Suspect]
  3. RIBAPAK (RIBAVIRIN) [Suspect]

REACTIONS (1)
  - Dyspnoea [None]
